FAERS Safety Report 9255327 (Version 1)
Quarter: 2013Q1

REPORT INFORMATION
  Report Type: Spontaneous
  Country: US (occurrence: None)
  Receive Date: 20121212
  Receipt Date: 20121212
  Transmission Date: 20140127
  Serious: No
  Sender: FDA-Public Use
  Company Number: 1209USA011296

PATIENT
  Age: 58 Year
  Sex: Male
  Weight: 109.77 kg

DRUGS (5)
  1. VICTRELIS [Suspect]
  2. REBETOL [Suspect]
  3. PEGASYS [Suspect]
  4. GINSENG (UNSPECIFIED) [Concomitant]
  5. VITAMIN D (UNSPECIFIED) [Concomitant]

REACTIONS (2)
  - Influenza like illness [None]
  - Neutropenia [None]
